FAERS Safety Report 6303916-4 (Version None)
Quarter: 2009Q3

REPORT INFORMATION
  Report Type: 
  Country: None (occurrence: None)
  Receive Date: 20090805
  Receipt Date: 20090724
  Transmission Date: 20100115
  Serious: Yes (Other)
  Sender: FDA-Public Use
  Company Number: SPV1-2009-01044

PATIENT

DRUGS (1)
  1. ANAGRELIDE HCL [Suspect]
     Indication: ESSENTIAL THROMBOCYTHAEMIA
     Dates: start: 20060101

REACTIONS (4)
  - DIALYSIS [None]
  - NEPHROSCLEROSIS [None]
  - RENAL CANCER [None]
  - RENAL FAILURE [None]
